FAERS Safety Report 9421855 (Version 1)
Quarter: 2013Q3

REPORT INFORMATION
  Report Type: Spontaneous
  Country: US (occurrence: None)
  Receive Date: 20130724
  Receipt Date: 20130724
  Transmission Date: 20140515
  Serious: Yes (Life-Threatening)
  Sender: FDA-Public Use
  Company Number: None

PATIENT
  Age: 84 Year
  Sex: Male
  Weight: 86 kg

DRUGS (20)
  1. INSULIN-GLARGINE [Suspect]
     Indication: DIABETES MELLITUS
     Dosage: 24 UNITS, QHS, SUBCUT
     Route: 058
     Dates: start: 20130206
  2. LISPRO INSULIN [Concomitant]
  3. VANCOMYCIN IV [Concomitant]
  4. CACTOBACILLUS [Concomitant]
  5. SIMVASTATIN [Concomitant]
  6. ASA [Concomitant]
  7. COREG [Concomitant]
  8. IMDUR [Concomitant]
  9. AMIODARONE [Concomitant]
  10. CLARITIN [Concomitant]
  11. MVI [Concomitant]
  12. FERROUS SULFATE [Concomitant]
  13. BENADRYL [Concomitant]
  14. ZINC [Concomitant]
  15. LOVENOX [Concomitant]
  16. ZOSYN [Concomitant]
  17. TRAZODONE [Concomitant]
  18. TYLENOL [Concomitant]
  19. ATIVAN [Concomitant]
  20. AMBIEN [Concomitant]

REACTIONS (2)
  - Unresponsive to stimuli [None]
  - Blood glucose decreased [None]
